FAERS Safety Report 6381434-5 (Version None)
Quarter: 2009Q3

REPORT INFORMATION
  Report Type: 
  Country: None (occurrence: None)
  Receive Date: 20090929
  Receipt Date: 20090917
  Transmission Date: 20100115
  Serious: Yes (Hospitalization)
  Sender: FDA-Public Use
  Company Number: GB-AMGEN-UK365203

PATIENT
  Sex: Female
  Weight: 65.6 kg

DRUGS (17)
  1. NEULASTA [Suspect]
     Indication: CHEMOTHERAPY
     Route: 058
     Dates: start: 20090903
  2. GEMCITABINE [Suspect]
     Route: 042
     Dates: start: 20090826
  3. CYCLOPHOSPHAMIDE [Suspect]
     Route: 042
     Dates: start: 20090826
  4. VINCRISTINE [Suspect]
     Route: 042
  5. RITUXIMAB [Suspect]
     Route: 042
     Dates: start: 20090826
  6. FLUCONAZOLE [Concomitant]
  7. ADCAL [Concomitant]
     Route: 048
  8. POTASSIUM SUPPLEMENT [Concomitant]
     Route: 048
  9. ACYCLOVIR [Concomitant]
     Route: 048
  10. VANCOMYCIN [Concomitant]
     Route: 042
  11. FUROSEMIDE [Concomitant]
     Route: 048
  12. FRAGMIN [Concomitant]
     Route: 058
  13. ALLOPURINOL [Concomitant]
     Route: 048
  14. OMEPRAZOLE [Concomitant]
     Route: 048
  15. ATENOLOL [Concomitant]
     Route: 048
  16. SIMVASTATIN [Concomitant]
     Route: 048
  17. FENTANYL [Concomitant]
     Route: 061

REACTIONS (2)
  - ATRIAL FIBRILLATION [None]
  - PLEURAL EFFUSION [None]
